FAERS Safety Report 7465377 (Version 5)
Quarter: 2015Q2

REPORT INFORMATION
  Report Type: Spontaneous
  Country: US (occurrence: US)
  Receive Date: 20100712
  Receipt Date: 20150524
  Transmission Date: 20150821
  Serious: No
  Sender: FDA-Public Use
  Company Number: US-JNJFOC-20100700485

PATIENT
  Age: 43 Year
  Sex: Female
  Weight: 92.08 kg

DRUGS (10)
  1. VALIUM [Concomitant]
     Active Substance: DIAZEPAM
     Indication: MUSCLE RELAXANT THERAPY
     Route: 048
     Dates: start: 2007
  2. GLIPIZIDE. [Concomitant]
     Active Substance: GLIPIZIDE
     Indication: DIABETES MELLITUS
     Route: 048
     Dates: start: 2007
  3. DURAGESIC [Suspect]
     Active Substance: FENTANYL
     Indication: NEURALGIA
     Dosage: NDC# 50458-0092-05
     Route: 062
     Dates: start: 201004
  4. GLIPIZIDE. [Concomitant]
     Active Substance: GLIPIZIDE
     Indication: DIABETES MELLITUS
     Route: 048
     Dates: start: 2008
  5. DURAGESIC [Suspect]
     Active Substance: FENTANYL
     Indication: NEURALGIA
     Dosage: NDC# 50458-092
     Route: 062
     Dates: start: 201003
  6. NORVASC [Concomitant]
     Active Substance: AMLODIPINE BESYLATE
     Indication: HYPERTENSION
     Route: 048
     Dates: start: 2007
  7. DURAGESIC [Suspect]
     Active Substance: FENTANYL
     Indication: NERVE INJURY
     Dosage: NDC# 50458-092
     Route: 062
     Dates: start: 201003
  8. DURAGESIC [Suspect]
     Active Substance: FENTANYL
     Indication: NERVE INJURY
     Dosage: NDC# 50458-0092-05
     Route: 062
     Dates: start: 201004
  9. PAXIL [Concomitant]
     Active Substance: PAROXETINE HYDROCHLORIDE
     Indication: DEPRESSION
     Route: 048
     Dates: start: 2009
  10. VICODIN [Concomitant]
     Active Substance: ACETAMINOPHEN\HYDROCODONE BITARTRATE
     Indication: NEUROLOGICAL INFECTION
     Route: 048

REACTIONS (8)
  - Product quality issue [Not Recovered/Not Resolved]
  - Treatment noncompliance [Not Recovered/Not Resolved]
  - Wrong technique in drug usage process [Not Recovered/Not Resolved]
  - Wrong technique in drug usage process [Recovered/Resolved]
  - Product quality issue [Unknown]
  - Neuralgia [Not Recovered/Not Resolved]
  - Wrong technique in drug usage process [Recovered/Resolved]
  - Neurological infection [Not Recovered/Not Resolved]

NARRATIVE: CASE EVENT DATE: 201003
